FAERS Safety Report 6692285-6 (Version None)
Quarter: 2010Q2

REPORT INFORMATION
  Report Type: 
  Country: None (occurrence: None)
  Receive Date: 20100419
  Receipt Date: 20100412
  Transmission Date: 20101027
  Serious: Yes (Hospitalization)
  Sender: FDA-Public Use
  Company Number: 2010SP002765

PATIENT
  Age: 67 Year
  Sex: Male
  Weight: 71 kg

DRUGS (8)
  1. TEMOZOLOMIDE [Suspect]
     Indication: METASTATIC MALIGNANT MELANOMA
     Dosage: 270 MG; QD; PO, 360 MG; QD;
     Route: 048
     Dates: start: 20091203, end: 20091207
  2. TEMOZOLOMIDE [Suspect]
     Indication: METASTATIC MALIGNANT MELANOMA
     Dosage: 270 MG; QD; PO, 360 MG; QD;
     Route: 048
     Dates: start: 20091231
  3. PLACEBO       (PLACEBO) [Suspect]
     Indication: METASTATIC MALIGNANT MELANOMA
     Dosage: 2 DF; QD; PO
     Route: 048
     Dates: start: 20091203, end: 20091209
  4. PLACEBO       (PLACEBO) [Suspect]
     Indication: METASTATIC MALIGNANT MELANOMA
     Dosage: 2 DF; QD; PO
     Route: 048
     Dates: start: 20091231
  5. METOCLOPRAMIDE          (METOCLOPRAMIDE) [Suspect]
     Indication: NAUSEA
  6. METOCLOPRAMIDE          (METOCLOPRAMIDE) [Suspect]
     Indication: VOMITING
  7. TRAMADOL HCL [Concomitant]
  8. SWINE FLU INJECTION [Concomitant]

REACTIONS (3)
  - NAUSEA [None]
  - SWOLLEN TONGUE [None]
  - VOMITING [None]
